FAERS Safety Report 13517894 (Version 3)
Quarter: 2017Q3

REPORT INFORMATION
  Report Type: Spontaneous
  Country: JP (occurrence: JP)
  Receive Date: 20170505
  Receipt Date: 20170719
  Transmission Date: 20171127
  Serious: Yes (Life-Threatening)
  Sender: FDA-Public Use
  Company Number: JP-SA-2017SA079614

PATIENT
  Age: 78 Year
  Sex: Male
  Weight: 59.5 kg

DRUGS (10)
  1. JEVTANA [Suspect]
     Active Substance: CABAZITAXEL
     Indication: PROSTATE CANCER
     Route: 042
     Dates: start: 20170117, end: 20170117
  2. BENIDIPINE [Concomitant]
     Active Substance: BENIDIPINE
  3. JEVTANA [Suspect]
     Active Substance: CABAZITAXEL
     Indication: PROSTATE CANCER
     Route: 042
     Dates: start: 20170327, end: 20170327
  4. LYRICA [Concomitant]
     Active Substance: PREGABALIN
  5. SINGULAIR [Concomitant]
     Active Substance: MONTELUKAST SODIUM
  6. URIEF [Concomitant]
     Active Substance: SILODOSIN
  7. LANSOPRAZOLE. [Concomitant]
     Active Substance: LANSOPRAZOLE
  8. THEOPHYLLINE [Concomitant]
     Active Substance: THEOPHYLLINE ANHYDROUS
  9. OXYCODONE [Concomitant]
     Active Substance: OXYCODONE
  10. CELECOX [Concomitant]
     Active Substance: CELECOXIB

REACTIONS (4)
  - Productive cough [Recovering/Resolving]
  - Interstitial lung disease [Recovering/Resolving]
  - Dyspnoea [Recovering/Resolving]
  - Pyrexia [Recovering/Resolving]

NARRATIVE: CASE EVENT DATE: 20170428
